FAERS Safety Report 10011601 (Version 2)
Quarter: 2014Q1

REPORT INFORMATION
  Report Type: Spontaneous
  Country: US (occurrence: US)
  Receive Date: 20140314
  Receipt Date: 20140314
  Transmission Date: 20141002
  Serious: Yes (Disabling)
  Sender: FDA-Public Use
  Company Number: US-GE HEALTHCARE MEDICAL DIAGNOSTICS-OSCN-PR-0811S-0627

PATIENT
  Age: 48 Year
  Sex: Male

DRUGS (4)
  1. OMNISCAN [Suspect]
     Indication: PERIPHERAL VASCULAR DISORDER
     Route: 042
     Dates: start: 20010706, end: 20010706
  2. OMNISCAN [Suspect]
     Indication: INFERIOR VENA CAVAL OCCLUSION
     Route: 042
     Dates: start: 20020321, end: 20020321
  3. OMNISCAN [Suspect]
     Indication: INTERMITTENT CLAUDICATION
     Route: 042
     Dates: start: 20060503, end: 20060503
  4. MAGNEVIST [Suspect]
     Indication: PRODUCT USED FOR UNKNOWN INDICATION
     Route: 042
     Dates: start: 20030805, end: 20030805

REACTIONS (1)
  - Nephrogenic systemic fibrosis [Not Recovered/Not Resolved]
